FAERS Safety Report 4608725-X (Version None)
Quarter: 2005Q1

REPORT INFORMATION
  Report Type: 
  Country: None (occurrence: None)
  Receive Date: 20050315
  Receipt Date: 20050304
  Transmission Date: 20050727
  Serious: Yes (Other)
  Sender: FDA-Public Use
  Company Number: AR-ROCHE-398142

PATIENT
  Age: 59 Year
  Sex: Female
  Weight: 120 kg

DRUGS (4)
  1. XENICAL [Suspect]
     Indication: OBESITY
     Route: 048
     Dates: start: 20050214, end: 20050214
  2. LEXOTANIL [Concomitant]
     Indication: ANXIETY DISORDER
     Route: 048
  3. ATENOLOL [Concomitant]
     Route: 048
  4. L-THYROXINE [Concomitant]
     Route: 048

REACTIONS (2)
  - LARYNGEAL OEDEMA [None]
  - LARYNGITIS [None]
